FAERS Safety Report 6516238-3 (Version None)
Quarter: 2009Q4

REPORT INFORMATION
  Report Type: 
  Country: None (occurrence: None)
  Receive Date: 20091223
  Receipt Date: 20091221
  Transmission Date: 20100525
  Serious: Yes (Disabling)
  Sender: FDA-Public Use
  Company Number: US-B.I. PHARMACEUTICALS,INC./RIDGEFIELD-2009-BP-10562PF

PATIENT
  Sex: Female

DRUGS (12)
  1. SPIRIVA [Suspect]
     Indication: CHRONIC OBSTRUCTIVE PULMONARY DISEASE
     Dosage: 18 MCG
  2. BUTALBITAL ACETAMINOPHEN AND CAFFEINE [Concomitant]
     Indication: HEADACHE
     Route: 048
     Dates: start: 20090527
  3. CARISOPRODOL [Concomitant]
     Indication: MUSCLE SPASMS
     Route: 048
     Dates: start: 20090327
  4. ACETAMINOPHEN AND HYDROCODONE BITARTRATE [Concomitant]
     Indication: PAIN
     Route: 048
     Dates: start: 20090327
  5. HYDROXYZINE PAMOATE [Concomitant]
     Route: 048
     Dates: start: 20090227
  6. MIRAPEX [Concomitant]
     Dosage: 0.25 MG
     Route: 048
     Dates: start: 20090902
  7. NEXIUM [Concomitant]
     Dosage: 40 MG
     Route: 048
     Dates: start: 20090427
  8. PROAIR HFA [Concomitant]
     Route: 055
     Dates: start: 20090827
  9. SEROQUEL [Concomitant]
     Dosage: 100 MG
     Route: 048
     Dates: start: 20090327
  10. SERTRALINE HCL [Concomitant]
     Dosage: 100 MG
     Route: 048
     Dates: start: 20090727
  11. SYMBICORT [Concomitant]
     Route: 055
     Dates: start: 20090626
  12. IBUPROHEN [Concomitant]

REACTIONS (1)
  - DISABILITY [None]
